FAERS Safety Report 6260420-X (Version None)
Quarter: 2009Q3

REPORT INFORMATION
  Report Type: 
  Country: None (occurrence: None)
  Receive Date: 20090708
  Receipt Date: 20090702
  Transmission Date: 20100115
  Serious: Yes (Death, Hospitalization, Other)
  Sender: FDA-Public Use
  Company Number: BR-BRISTOL-MYERS SQUIBB COMPANY-14175566

PATIENT
  Age: 42 Year
  Sex: Female

DRUGS (12)
  1. ORENCIA [Suspect]
     Indication: RHEUMATOID ARTHRITIS
     Dosage: 4 INFUSIONS OF 500MG. LAST INFUSION BEFORE EVENT WAS ON 05-APR-08
     Route: 042
  2. PREDNISONE [Suspect]
     Dosage: BETWEEN 5MG AND 10MG
  3. PURAN T4 [Suspect]
  4. LANTUS [Suspect]
  5. NOVORAPID [Suspect]
     Dosage: NOVORAPID  INSULIN
  6. ARADOIS [Suspect]
  7. PRESSAT [Suspect]
  8. OMEPRAZOL [Suspect]
  9. ANTIBIOTICS [Concomitant]
     Dosage: BROAD SPECTRUM
  10. DORMONID [Concomitant]
  11. FENTANYL [Concomitant]
  12. LANEXAT [Concomitant]

REACTIONS (9)
  - ALANINE AMINOTRANSFERASE INCREASED [None]
  - ASPARTATE AMINOTRANSFERASE INCREASED [None]
  - DEHYDRATION [None]
  - GASTROENTERITIS [None]
  - MUSCLE RIGIDITY [None]
  - MUSCULAR WEAKNESS [None]
  - RENAL FAILURE CHRONIC [None]
  - SEPTIC SHOCK [None]
  - SYNCOPE [None]
